FAERS Safety Report 7076707-7 (Version None)
Quarter: 2010Q4

REPORT INFORMATION
  Report Type: 
  Country: None (occurrence: None)
  Receive Date: 20101022
  Receipt Date: 20101012
  Transmission Date: 20110411
  Serious: Yes (Other)
  Sender: FDA-Public Use
  Company Number: 2010100022

PATIENT
  Age: 61 Year
  Sex: Male
  Weight: 79.3795 kg

DRUGS (12)
  1. ONSOLIS [Suspect]
     Indication: CANCER PAIN
     Dosage: TITRATE UP TO 4-200 MCG PER DOSE (UP TO 4 TIMES DAILY), BU (400 MCG, UP TO 4 TIMES DAILY) BU
     Route: 002
     Dates: start: 20100521, end: 20100628
  2. ONSOLIS [Suspect]
     Indication: CANCER PAIN
     Dosage: TITRATE UP TO 4-200 MCG PER DOSE (UP TO 4 TIMES DAILY), BU (400 MCG, UP TO 4 TIMES DAILY) BU
     Route: 002
     Dates: start: 20100629
  3. DILAUDID [Concomitant]
  4. FENTANYL [Concomitant]
  5. CELEXA [Concomitant]
  6. LOVENOX [Concomitant]
  7. DEXAMETHASONE [Concomitant]
  8. VALTREX [Concomitant]
  9. FLONASE [Concomitant]
  10. ZOMETA [Concomitant]
  11. REVLIMID [Concomitant]
  12. MIRALAX [Concomitant]

REACTIONS (1)
  - LYMPH NODE ABSCESS [None]
